FAERS Safety Report 4511773-1 (Version None)
Quarter: 2004Q4

REPORT INFORMATION
  Report Type: 
  Country: None (occurrence: None)
  Receive Date: 20041123
  Receipt Date: 20041123
  Transmission Date: 20050328
  Serious: Yes (Other)
  Sender: FDA-Public Use
  Company Number: None

PATIENT
  Age: 57 Year
  Sex: Male
  Weight: 87.3 kg

DRUGS (8)
  1. SIMVASTATIN [Suspect]
  2. DILTIAZEM (INWOOD) [Concomitant]
  3. METOPROLOL TARTRATE [Concomitant]
  4. SERTRALINE HCL [Concomitant]
  5. CLOPIDOGREL BISULFATE [Concomitant]
  6. DM 10/GUAIFENESN  (ALC-F/SF) SYR [Concomitant]
  7. OMEPRAZOLE [Concomitant]
  8. ROSIGLITAZONE MALEATE [Concomitant]

REACTIONS (1)
  - MYALGIA [None]
